FAERS Safety Report 6973170-9 (Version None)
Quarter: 2010Q3

REPORT INFORMATION
  Report Type: 
  Country: None (occurrence: None)
  Receive Date: 20100824
  Receipt Date: 20100706
  Transmission Date: 20110219
  Serious: No
  Sender: FDA-Public Use
  Company Number: 309880

PATIENT
  Age: 69 Year
  Sex: Female

DRUGS (10)
  1. VICTOZA [Suspect]
     Indication: TYPE 2 DIABETES MELLITUS
     Dosage: 0.6 MG, QD, SUBCUTANEOUS
     Route: 058
     Dates: start: 20100603
  2. LANTUS [Concomitant]
  3. PRILOSEC [Concomitant]
  4. LOVASTATIN [Concomitant]
  5. METFORMIN HCL [Concomitant]
  6. LEVOXYL [Concomitant]
  7. PLAVIX [Concomitant]
  8. PLAVIX [Concomitant]
  9. AMLODIPINE BESYLATE [Concomitant]
  10. DAILY VITAMINS [Concomitant]

REACTIONS (4)
  - DIZZINESS [None]
  - HYPERHIDROSIS [None]
  - TREMOR [None]
  - VOMITING [None]
